FAERS Safety Report 15906404 (Version 3)
Quarter: 2019Q1

REPORT INFORMATION
  Report Type: Spontaneous
  Country: US (occurrence: US)
  Receive Date: 20190204
  Receipt Date: 20190306
  Transmission Date: 20190417
  Serious: No
  Sender: FDA-Public Use
  Company Number: US-SA-2019SA023482

PATIENT
  Age: 45 Year
  Sex: Female

DRUGS (1)
  1. LANTUS [Suspect]
     Active Substance: INSULIN GLARGINE
     Indication: TYPE 2 DIABETES MELLITUS
     Dosage: 100 U, QD
     Route: 065

REACTIONS (5)
  - Device breakage [Unknown]
  - Device operational issue [Unknown]
  - Device leakage [Unknown]
  - Blood glucose increased [Unknown]
  - Incorrect dose administered [Unknown]
